FAERS Safety Report 4878823-4 (Version None)
Quarter: 2006Q1

REPORT INFORMATION
  Report Type: 
  Country: None (occurrence: None)
  Receive Date: 20060110
  Receipt Date: 20060110
  Transmission Date: 20060701
  Serious: Yes (Hospitalization)
  Sender: FDA-Public Use
  Company Number: None

PATIENT
  Age: 75 Year
  Sex: Male
  Weight: 55.7924 kg

DRUGS (14)
  1. ERBITUX [Suspect]
     Indication: PANCREATIC CARCINOMA
     Dosage: 250 MG /M2 IV = 425 MG IV
     Route: 042
     Dates: start: 20050114
  2. ERBITUX [Suspect]
     Indication: PANCREATIC CARCINOMA
     Dosage: 250 MG /M2 IV = 425 MG IV
     Route: 042
     Dates: start: 20051221
  3. ERBITUX [Suspect]
     Indication: PANCREATIC CARCINOMA
     Dosage: 250 MG /M2 IV = 425 MG IV
     Route: 042
     Dates: start: 20051228
  4. GEMCITABINE [Suspect]
     Indication: PANCREATIC CARCINOMA
     Dosage: 200 MG/M2 IV = 340 MG IV
     Route: 042
     Dates: start: 20051228
  5. GEMCITABINE [Suspect]
     Indication: PANCREATIC CARCINOMA
     Dosage: 200 MG/M2 IV = 340 MG IV
     Route: 042
     Dates: start: 20060104
  6. PLAVIX [Concomitant]
  7. PROZAC [Concomitant]
  8. AMBIEN [Concomitant]
  9. MIRAPEX [Concomitant]
  10. FLEXERIL [Concomitant]
  11. REGLAN [Concomitant]
  12. PROPRANOLOL [Concomitant]
  13. PERCOCET [Concomitant]
  14. COLACE [Concomitant]

REACTIONS (3)
  - NAUSEA [None]
  - RETCHING [None]
  - VOMITING [None]
